FAERS Safety Report 6408212-2 (Version None)
Quarter: 2009Q4

REPORT INFORMATION
  Report Type: 
  Country: None (occurrence: None)
  Receive Date: 20091021
  Receipt Date: 20091013
  Transmission Date: 20100525
  Serious: Yes (Death)
  Sender: FDA-Public Use
  Company Number: KR-ROCHE-662678

PATIENT
  Age: 68 Year
  Sex: Male

DRUGS (1)
  1. TAMIFLU [Suspect]
     Route: 065
     Dates: start: 20090914

REACTIONS (2)
  - INTESTINAL HAEMORRHAGE [None]
  - PNEUMONIA [None]
